FAERS Safety Report 7861596-0 (Version None)
Quarter: 2011Q4

REPORT INFORMATION
  Report Type: 
  Country: None (occurrence: None)
  Receive Date: 20111027
  Receipt Date: 20111019
  Transmission Date: 20120403
  Serious: Yes (Other)
  Sender: FDA-Public Use
  Company Number: DE-GILEAD-2011-0045825

PATIENT
  Sex: Female

DRUGS (7)
  1. METFORMIN HCL [Concomitant]
     Dosage: 1275 MG, UNK
  2. VOTUM                              /01635402/ [Concomitant]
     Dosage: 20 MG, QD
     Route: 048
  3. BISOPROLOL [Concomitant]
     Dosage: 7.5 MG, UNK
     Route: 048
  4. MOLSIDOMIN [Concomitant]
     Dosage: UNK
     Route: 048
  5. FLUVASTATIN SODIUM [Concomitant]
     Dosage: UNK
     Route: 048
  6. RANOLAZINE [Suspect]
     Indication: ANGINA PECTORIS
     Dosage: 375 MG, QD
     Dates: start: 20110928, end: 20111010
  7. ASPIRIN [Concomitant]
     Dosage: UNK
     Route: 048

REACTIONS (1)
  - ANGINA PECTORIS [None]
